FAERS Safety Report 7434728-6 (Version None)
Quarter: 2011Q2

REPORT INFORMATION
  Report Type: 
  Country: None (occurrence: None)
  Receive Date: 20110425
  Receipt Date: 20110419
  Transmission Date: 20111010
  Serious: Yes (Other)
  Sender: FDA-Public Use
  Company Number: JP-PFIZER INC-2011077533

PATIENT
  Age: 60 Year
  Sex: Male
  Weight: 70 kg

DRUGS (15)
  1. SALAGEN [Concomitant]
     Dosage: 5 MG, 3X/DAY
     Dates: start: 20100129
  2. TAKEPRON [Concomitant]
     Dosage: 30 MG, 1X/DAY
     Dates: start: 20110217
  3. LYRICA [Suspect]
     Dosage: 75 MG, UNK
     Dates: start: 20110311, end: 20110322
  4. LYRICA [Suspect]
     Indication: NEURALGIA
     Dosage: 25 MG, UNK
     Route: 048
     Dates: start: 20110307, end: 20110310
  5. MEVALOTIN [Concomitant]
     Dosage: 10 MG, 1X/DAY
     Dates: start: 20100507
  6. IMURAN [Concomitant]
     Indication: BEHCET'S SYNDROME
     Dosage: 50 MG, 1X/DAY
     Dates: start: 20110221
  7. PREDONINE [Concomitant]
     Dosage: 10 MG, 1X/DAY
  8. RIVOTRIL [Suspect]
     Indication: MUSCLE SPASMS
     Dosage: 0.5 MG, 1X/DAY
     Route: 048
     Dates: start: 20110228, end: 20110322
  9. MYSLEE [Concomitant]
     Dosage: 10 MG, 1X/DAY
     Dates: start: 20110209
  10. ZOLOFT [Suspect]
     Indication: PSYCHIATRIC SYMPTOM
     Dosage: 25 MG, 1X/DAY
     Route: 048
     Dates: start: 20110304, end: 20110322
  11. CELECOXIB [Concomitant]
     Dosage: 200 MG, 2X/DAY
     Dates: start: 20080101
  12. ALENDRONATE SODIUM [Concomitant]
     Dosage: 35 MG, WEEKLY
     Dates: start: 20110217
  13. PREDONINE [Concomitant]
     Indication: BEHCET'S SYNDROME
     Dosage: 30MG DAILY
     Dates: start: 20110203
  14. PENTASA [Concomitant]
     Indication: ENTEROCOLITIS
     Dosage: 1.5 G, 2X/DAY
     Dates: start: 20110130
  15. PROMAC /JPN/ [Concomitant]
     Dosage: 75 MG, 2X/DAY
     Dates: start: 20110203

REACTIONS (2)
  - LIVER DISORDER [None]
  - HEPATIC FUNCTION ABNORMAL [None]
